FAERS Safety Report 4394643-1 (Version None)
Quarter: 2004Q3

REPORT INFORMATION
  Report Type: 
  Country: None (occurrence: None)
  Receive Date: 20040706
  Receipt Date: 20040618
  Transmission Date: 20050211
  Serious: Yes (Hospitalization)
  Sender: FDA-Public Use
  Company Number: 192944

PATIENT
  Age: 61 Year
  Sex: Male
  Weight: 90.7194 kg

DRUGS (12)
  1. AVONEX [Suspect]
     Indication: MULTIPLE SCLEROSIS
     Dosage: 30 MCG QW IM
     Route: 030
     Dates: start: 19970101, end: 20031001
  2. AVONEX [Suspect]
     Indication: MULTIPLE SCLEROSIS
     Dosage: 30 MCG QW IM
     Route: 030
     Dates: start: 20031001
  3. LIPITOR [Concomitant]
  4. BACLOFEN [Concomitant]
  5. VASOTEC [Concomitant]
  6. ATENOLOL [Concomitant]
  7. LASIX [Concomitant]
  8. PAXIL [Concomitant]
  9. FOLIC ACID [Concomitant]
  10. TRIAMCINOLONE [Concomitant]
  11. IMIPRAMINE [Concomitant]
  12. LOVASTATIN [Concomitant]

REACTIONS (34)
  - ACUTE MYOCARDIAL INFARCTION [None]
  - ANOREXIA [None]
  - ASTHENIA [None]
  - BACTERIAL INFECTION [None]
  - BLOOD CHLORIDE DECREASED [None]
  - BLOOD SODIUM DECREASED [None]
  - BLOOD URINE [None]
  - CHILLS [None]
  - CORONARY ARTERY OCCLUSION [None]
  - CYSTITIS [None]
  - DISEASE RECURRENCE [None]
  - DIZZINESS [None]
  - HAEMATOCRIT DECREASED [None]
  - HAEMOGLOBIN INCREASED [None]
  - HEART RATE INCREASED [None]
  - IMPLANT SITE INFECTION [None]
  - INFLUENZA LIKE ILLNESS [None]
  - METHICILLIN-RESISTANT STAPHYLOCOCCAL AUREUS TEST POSITIVE [None]
  - MIGRATION OF IMPLANT [None]
  - MULTIPLE SCLEROSIS [None]
  - NAUSEA [None]
  - NEPHROLITHIASIS [None]
  - NITRITE URINE [None]
  - PROTEIN URINE [None]
  - PSEUDOMONAS INFECTION [None]
  - PYREXIA [None]
  - SCAR [None]
  - SEPSIS [None]
  - STAPHYLOCOCCAL INFECTION [None]
  - STENT OCCLUSION [None]
  - URETERITIS [None]
  - URINARY TRACT INFECTION [None]
  - URINE LEUKOCYTE ESTERASE [None]
  - WEIGHT DECREASED [None]
